FAERS Safety Report 15498680 (Version 2)
Quarter: 2018Q4

REPORT INFORMATION
  Report Type: Spontaneous
  Country: US (occurrence: US)
  Receive Date: 20181015
  Receipt Date: 20181026
  Transmission Date: 20190205
  Serious: No
  Sender: FDA-Public Use
  Company Number: US-FRESENIUS MEDICAL CARE RENAL THERAPIES GROUP-FMC-1810-001810

PATIENT
  Sex: Male
  Weight: 98 kg

DRUGS (1)
  1. DELFLEX WITH DEXTROSE 2.5% LOW MAGNESIUM LOW CALCIUM [Suspect]
     Active Substance: CALCIUM CHLORIDE\DEXTROSE\MAGNESIUM CHLORIDE\SODIUM CHLORIDE\SODIUM LACTATE
     Indication: END STAGE RENAL DISEASE
     Dosage: CCPD 7 DAYS A WEEK, 5 EXCHANGES WITH A FILL VOLUME OF 3 LITRES AND A LAST FILL OF 2 LITRES.
     Route: 033

REACTIONS (1)
  - Groin pain [Recovered/Resolved]
